FAERS Safety Report 17119852 (Version 1)
Quarter: 2019Q4

REPORT INFORMATION
  Report Type: Spontaneous
  Country: FR (occurrence: FR)
  Receive Date: 20191206
  Receipt Date: 20191206
  Transmission Date: 20200122
  Serious: Yes (Hospitalization)
  Sender: FDA-Public Use
  Company Number: FR-TEVA-2019-FR-1147501

PATIENT
  Age: 26 Year
  Sex: Male
  Weight: 84 kg

DRUGS (3)
  1. TRAMADOL BASE [Suspect]
     Active Substance: TRAMADOL
     Indication: CHEST PAIN
     Dosage: UNKNOWN
     Route: 065
  2. MORPHINE [Suspect]
     Active Substance: MORPHINE
     Indication: PRODUCT USED FOR UNKNOWN INDICATION
     Dosage: UNKNOWN
     Route: 065
     Dates: start: 201910
  3. CANNABIS [Suspect]
     Active Substance: CANNABIS SATIVA SUBSP. INDICA TOP
     Indication: PRODUCT SUBSTITUTION
     Dosage: UNKNOWN
     Route: 055

REACTIONS (2)
  - Drug dependence [Not Recovered/Not Resolved]
  - Sinus tachycardia [Recovered/Resolved]

NARRATIVE: CASE EVENT DATE: 20191025
